FAERS Safety Report 25134434 (Version 1)
Quarter: 2025Q1

REPORT INFORMATION
  Report Type: Spontaneous
  Country: US (occurrence: None)
  Receive Date: 20250327
  Receipt Date: 20250327
  Transmission Date: 20250408
  Serious: Yes (Death)
  Sender: FDA-CTU
  Company Number: None

PATIENT
  Age: 41 Year
  Sex: Female

DRUGS (5)
  1. INGREZZA [Suspect]
     Active Substance: VALBENAZINE
     Indication: Tardive dyskinesia
     Dosage: FREQUENCY : DAILY;?
     Route: 048
  2. MORPHINE [Suspect]
     Active Substance: MORPHINE
  3. MORPHINE IR 30MG [Concomitant]
  4. INGREZZA [Concomitant]
     Active Substance: VALBENAZINE
  5. LITHIUM [Concomitant]
     Active Substance: LITHIUM

REACTIONS (1)
  - Accidental overdose [None]

NARRATIVE: CASE EVENT DATE: 20250223
